FAERS Safety Report 23999010 (Version 1)
Quarter: 2024Q2

REPORT INFORMATION
  Report Type: Spontaneous
  Country: US (occurrence: None)
  Receive Date: 20240620
  Receipt Date: 20240620
  Transmission Date: 20240716
  Serious: Yes (Hospitalization, Other)
  Sender: FDA-Public Use
  Company Number: None

PATIENT
  Age: 37 Year
  Sex: Female
  Weight: 132.45 kg

DRUGS (2)
  1. OZEMPIC [Suspect]
     Active Substance: SEMAGLUTIDE
     Indication: Diabetes mellitus inadequate control
     Route: 058
     Dates: start: 20230922, end: 20240521
  2. OZEMPIC [Suspect]
     Active Substance: SEMAGLUTIDE
     Indication: Obesity

REACTIONS (6)
  - Nausea [None]
  - Vomiting [None]
  - Abdominal pain [None]
  - Impaired gastric emptying [None]
  - Erosive oesophagitis [None]
  - Therapy cessation [None]

NARRATIVE: CASE EVENT DATE: 20240501
